FAERS Safety Report 20034832 (Version 2)
Quarter: 2021Q4

REPORT INFORMATION
  Report Type: Spontaneous
  Country: FR (occurrence: FR)
  Receive Date: 20211104
  Receipt Date: 20211115
  Transmission Date: 20220303
  Serious: Yes (Death, Other)
  Sender: FDA-Public Use
  Company Number: None

PATIENT
  Age: 75 Year
  Sex: Male

DRUGS (8)
  1. TAHOR [Suspect]
     Active Substance: ATORVASTATIN CALCIUM
     Indication: Dyslipidaemia
     Dosage: 1 DF, 1X/DAY
     Route: 048
     Dates: end: 20210628
  2. INIPOMP [Suspect]
     Active Substance: PANTOPRAZOLE SODIUM
     Dosage: 1 DF, 1X/DAY
     Route: 048
     Dates: end: 20210628
  3. SILODOSIN [Suspect]
     Active Substance: SILODOSIN
     Dosage: 1 DF, 1X/DAY
     Route: 048
     Dates: end: 20210628
  4. METFORMIN PAMOATE [Suspect]
     Active Substance: METFORMIN PAMOATE
     Indication: Type 2 diabetes mellitus
     Dosage: 3 DF, 1X/DAY
     Route: 048
     Dates: start: 2002, end: 20210628
  5. PROTHIADEN [Suspect]
     Active Substance: DOTHIEPIN HYDROCHLORIDE
     Indication: Depression
     Dosage: 1 DF, 1X/DAY
     Route: 048
     Dates: start: 2021, end: 20210628
  6. ASPIRIN\CLOPIDOGREL [Suspect]
     Active Substance: ASPIRIN\CLOPIDOGREL
     Indication: Myocardial ischaemia
     Dosage: 1 DF, 1X/DAY
     Route: 048
     Dates: end: 20210628
  7. HERBALS\SAW PALMETTO [Suspect]
     Active Substance: HERBALS\SAW PALMETTO
     Dosage: 2 DF, 1X/DAY
     Route: 048
     Dates: end: 20210628
  8. CLOTIAZEPAM [Suspect]
     Active Substance: CLOTIAZEPAM
     Indication: Depression
     Dosage: 3 DF, 1X/DAY
     Route: 048
     Dates: start: 2021, end: 20210628

REACTIONS (2)
  - Subdural haematoma [Fatal]
  - Cerebral haematoma [Fatal]

NARRATIVE: CASE EVENT DATE: 20210601
